FAERS Safety Report 10909654 (Version 1)
Quarter: 2015Q1

REPORT INFORMATION
  Report Type: Spontaneous
  Country: US (occurrence: US)
  Receive Date: 20150312
  Receipt Date: 20150312
  Transmission Date: 20150721
  Serious: No
  Sender: FDA-Public Use
  Company Number: US-SA-2014SA063393

PATIENT
  Age: 61 Year
  Sex: Female

DRUGS (1)
  1. NASACORT ALLERGY 24HR [Suspect]
     Active Substance: TRIAMCINOLONE ACETONIDE
     Indication: SEASONAL ALLERGY
     Dosage: DOSE- 1-2 SPRAYS EANARES
     Route: 065
     Dates: start: 20140501, end: 20140507

REACTIONS (4)
  - Headache [Recovered/Resolved]
  - Extra dose administered [Unknown]
  - Dizziness [Recovered/Resolved]
  - Drug ineffective [Unknown]
